FAERS Safety Report 14452827 (Version 3)
Quarter: 2018Q2

REPORT INFORMATION
  Report Type: Spontaneous
  Country: DE (occurrence: DE)
  Receive Date: 20180129
  Receipt Date: 20180411
  Transmission Date: 20180711
  Serious: Yes (Other)
  Sender: FDA-Public Use
  Company Number: DE-009507513-1801DEU008965

PATIENT
  Sex: Male

DRUGS (3)
  1. CORTISONE [Concomitant]
     Active Substance: CORTISONE\HYDROCORTISONE
     Indication: PRODUCT USED FOR UNKNOWN INDICATION
     Dosage: UNK
     Route: 065
  2. KEYTRUDA [Suspect]
     Active Substance: PEMBROLIZUMAB
     Indication: COLON CANCER
     Dosage: 200 ML, UNK
     Route: 042
  3. KEYTRUDA [Suspect]
     Active Substance: PEMBROLIZUMAB
     Dosage: 200 ML, UNK
     Route: 042
     Dates: start: 20180128

REACTIONS (11)
  - Adverse reaction [Unknown]
  - Jaundice [Unknown]
  - Fatigue [Unknown]
  - Elephantiasis [Unknown]
  - Cholestasis [Unknown]
  - Product use in unapproved indication [Unknown]
  - Bile duct cancer [Unknown]
  - Liver function test abnormal [Unknown]
  - Diarrhoea [Unknown]
  - Malignant neoplasm progression [Unknown]
  - Asthenia [Unknown]
